FAERS Safety Report 7916135-2 (Version None)
Quarter: 2011Q4

REPORT INFORMATION
  Report Type: 
  Country: None (occurrence: None)
  Receive Date: 20111116
  Receipt Date: 20111110
  Transmission Date: 20120403
  Serious: Yes (Hospitalization)
  Sender: FDA-Public Use
  Company Number: US-BIOGENIDEC-2008BI011229

PATIENT
  Age: 56 Year
  Sex: Female

DRUGS (5)
  1. AVONEX [Suspect]
     Route: 030
     Dates: start: 20080522, end: 20100815
  2. AVONEX [Suspect]
     Route: 030
     Dates: start: 20040101
  3. COPAXONE [Concomitant]
     Indication: MULTIPLE SCLEROSIS
  4. AVONEX [Suspect]
     Route: 030
     Dates: start: 20100919
  5. AVONEX [Suspect]
     Indication: MULTIPLE SCLEROSIS
     Route: 030
     Dates: start: 20060108, end: 20080401

REACTIONS (4)
  - BREAST CANCER RECURRENT [None]
  - POSTOPERATIVE WOUND COMPLICATION [None]
  - POSTOPERATIVE WOUND INFECTION [None]
  - GENERAL SYMPTOM [None]
